FAERS Safety Report 4740586-0 (Version None)
Quarter: 2005Q3

REPORT INFORMATION
  Report Type: 
  Country: None (occurrence: None)
  Receive Date: 20050810
  Receipt Date: 20050802
  Transmission Date: 20060218
  Serious: Yes (Hospitalization)
  Sender: FDA-Public Use
  Company Number: PHRM2005FR02219

PATIENT
  Age: 41 Year
  Sex: Female

DRUGS (5)
  1. AREDIA [Suspect]
     Indication: METASTASES TO BONE
     Dosage: 60 MG
     Route: 042
     Dates: start: 20010515
  2. AREDIA [Suspect]
     Dosage: 60 MG EVERY 3 WEEKS
     Route: 042
     Dates: start: 20010901
  3. LYTOS [Suspect]
     Dosage: 2-3 TAB PER WEEK
     Route: 048
     Dates: start: 20000215, end: 20010215
  4. NAVELBINE [Concomitant]
  5. HERCEPTIN [Concomitant]

REACTIONS (13)
  - ACTINOMYCOSIS [None]
  - ASEPTIC NECROSIS BONE [None]
  - BACTERIAL INFECTION [None]
  - DENTAL PROSTHESIS PLACEMENT [None]
  - IMPAIRED HEALING [None]
  - MUCOSAL ULCERATION [None]
  - PURULENT DISCHARGE [None]
  - ROAD TRAFFIC ACCIDENT [None]
  - SPINAL FRACTURE [None]
  - SURGERY [None]
  - TOOTH EXTRACTION [None]
  - TREATMENT NONCOMPLIANCE [None]
  - WOUND DEBRIDEMENT [None]
